FAERS Safety Report 4530557-1 (Version None)
Quarter: 2004Q4

REPORT INFORMATION
  Report Type: 
  Country: None (occurrence: None)
  Receive Date: 20041216
  Receipt Date: 20041125
  Transmission Date: 20050328
  Serious: Yes (Hospitalization)
  Sender: FDA-Public Use
  Company Number: JP_041205298

PATIENT
  Age: 10 Year
  Sex: Male

DRUGS (5)
  1. ONCOVIN [Suspect]
     Indication: GERM CELL CANCER
  2. ETOPOSIDE [Concomitant]
  3. CYCLOPHOSPHAMIDE [Concomitant]
  4. CISPLATIN [Concomitant]
  5. VASOPRESSIN  INJECTION [Concomitant]

REACTIONS (3)
  - CONVULSION [None]
  - INAPPROPRIATE ANTIDIURETIC HORMONE SECRETION [None]
  - URINE OSMOLARITY INCREASED [None]
